FAERS Safety Report 4325787-8 (Version None)
Quarter: 2004Q1

REPORT INFORMATION
  Report Type: 
  Country: None (occurrence: None)
  Receive Date: 20040323
  Receipt Date: 20040311
  Transmission Date: 20041129
  Serious: Yes (Other)
  Sender: FDA-Public Use
  Company Number: US-JNJFOC-20030906217

PATIENT
  Sex: Female

DRUGS (24)
  1. REMICADE [Suspect]
     Indication: PYODERMA GANGRENOSUM
     Dosage: 100 MG, INTRAVENOUS
     Route: 042
     Dates: start: 20030102
  2. REMICADE [Suspect]
     Indication: PYODERMA GANGRENOSUM
     Dosage: 100 MG, INTRAVENOUS
     Route: 042
     Dates: start: 20030116
  3. REMICADE [Suspect]
     Indication: PYODERMA GANGRENOSUM
     Dosage: 100 MG, INTRAVENOUS
     Route: 042
     Dates: start: 20030211
  4. REMICADE [Suspect]
     Indication: PYODERMA GANGRENOSUM
     Dosage: 100 MG, INTRAVENOUS
     Route: 042
     Dates: start: 20030219
  5. REMICADE [Suspect]
     Indication: PYODERMA GANGRENOSUM
     Dosage: 100 MG, INTRAVENOUS
     Route: 042
     Dates: start: 20030815
  6. REMICADE [Suspect]
     Indication: PYODERMA GANGRENOSUM
     Dosage: 100 MG, INTRAVENOUS
     Route: 042
     Dates: start: 20030916
  7. REMICADE [Suspect]
     Indication: PYODERMA GANGRENOSUM
     Dosage: 100 MG, INTRAVENOUS
     Route: 042
     Dates: start: 20031010
  8. REMICADE [Suspect]
     Indication: PYODERMA GANGRENOSUM
     Dosage: 100 MG, INTRAVENOUS
     Route: 042
     Dates: start: 20031020
  9. REMICADE [Suspect]
     Indication: PYODERMA GANGRENOSUM
     Dosage: 100 MG, INTRAVENOUS
     Route: 042
     Dates: start: 20031112
  10. REMICADE [Suspect]
     Indication: PYODERMA GANGRENOSUM
     Dosage: 100 MG, INTRAVENOUS
     Route: 042
     Dates: start: 20031124
  11. REMICADE [Suspect]
     Indication: PYODERMA GANGRENOSUM
     Dosage: 100 MG, INTRAVENOUS
     Route: 042
     Dates: start: 20040102
  12. REMICADE [Suspect]
     Indication: PYODERMA GANGRENOSUM
     Dosage: 100 MG, INTRAVENOUS
     Route: 042
     Dates: start: 20040115
  13. VICODAN (VICODIN) [Concomitant]
  14. PREDNISONE [Concomitant]
  15. DAPSONE [Concomitant]
  16. PURINETHOL [Concomitant]
  17. AMOXICILLIN [Concomitant]
  18. ZOLOFT [Concomitant]
  19. MP (MERCAPTOPURINE) [Concomitant]
  20. TRAZADONE (TRAZODONE) [Concomitant]
  21. ZANTAC [Concomitant]
  22. ZYRTEC [Concomitant]
  23. TYLENOL [Concomitant]
  24. PHENTERMINE [Concomitant]

REACTIONS (12)
  - ANTINUCLEAR ANTIBODY POSITIVE [None]
  - DISEASE RECURRENCE [None]
  - INTESTINAL OBSTRUCTION [None]
  - INTESTINAL STOMA COMPLICATION [None]
  - LUPUS-LIKE SYNDROME [None]
  - PAIN [None]
  - PAIN IN EXTREMITY [None]
  - PLEURISY [None]
  - PYODERMA GANGRENOSUM [None]
  - ULCER [None]
  - UPPER RESPIRATORY TRACT INFECTION [None]
  - WEIGHT INCREASED [None]
